FAERS Safety Report 14081580 (Version 2)
Quarter: 2018Q1

REPORT INFORMATION
  Report Type: Report from Study
  Country: US (occurrence: US)
  Receive Date: 20171013
  Receipt Date: 20180328
  Transmission Date: 20180508
  Serious: Yes (Hospitalization)
  Sender: FDA-Public Use
  Company Number: US-ROCHE-2005240

PATIENT

DRUGS (3)
  1. RIBAVIRIN. [Suspect]
     Active Substance: RIBAVIRIN
     Indication: INFLUENZA
     Route: 048
  2. AMANTADINE. [Suspect]
     Active Substance: AMANTADINE HYDROCHLORIDE
     Indication: INFLUENZA
     Route: 048
  3. OSELTAMIVIR [Suspect]
     Active Substance: OSELTAMIVIR
     Indication: INFLUENZA
     Route: 048

REACTIONS (16)
  - Atrial tachycardia [Unknown]
  - Nausea [Unknown]
  - Diarrhoea haemorrhagic [Unknown]
  - Pneumonia [Unknown]
  - Pulmonary oedema [Unknown]
  - Cellulitis [Unknown]
  - Gastroenteritis [Unknown]
  - Cardiac failure [Unknown]
  - Dehydration [Unknown]
  - Spinal compression fracture [Unknown]
  - Bronchospasm [Unknown]
  - Atrial fibrillation [Unknown]
  - Asthma [Unknown]
  - Diarrhoea [Unknown]
  - Diabetic foot [Unknown]
  - Febrile neutropenia [Unknown]
